FAERS Safety Report 9079999 (Version 1)
Quarter: 2013Q1

REPORT INFORMATION
  Report Type: Spontaneous
  Country: US (occurrence: US)
  Receive Date: 20130130
  Receipt Date: 20130130
  Transmission Date: 20140127
  Serious: Yes (Other)
  Sender: FDA-Public Use
  Company Number: US-JNJFOC-20130110967

PATIENT
  Sex: 0

DRUGS (4)
  1. REMICADE [Suspect]
     Indication: PRODUCT USED FOR UNKNOWN INDICATION
     Route: 042
  2. REMICADE [Suspect]
     Indication: PRODUCT USED FOR UNKNOWN INDICATION
     Route: 042
  3. HUMIRA [Concomitant]
     Indication: PRODUCT USED FOR UNKNOWN INDICATION
     Route: 050
  4. IMURAN [Concomitant]
     Route: 065

REACTIONS (5)
  - Heart rate increased [Unknown]
  - Respiratory rate increased [Unknown]
  - Body temperature increased [Unknown]
  - Blood pressure increased [Unknown]
  - Flushing [Unknown]
